FAERS Safety Report 7046152-9 (Version None)
Quarter: 2010Q4

REPORT INFORMATION
  Report Type: 
  Country: None (occurrence: None)
  Receive Date: 20101014
  Receipt Date: 20101009
  Transmission Date: 20110411
  Serious: Yes (Death)
  Sender: FDA-Public Use
  Company Number: US-PFIZER INC-2010128935

PATIENT
  Sex: Female

DRUGS (2)
  1. CELEBREX [Suspect]
  2. INSULIN [Suspect]

REACTIONS (2)
  - DEATH [None]
  - MEDICATION ERROR [None]
